FAERS Safety Report 21065185 (Version 1)
Quarter: 2022Q3

REPORT INFORMATION
  Report Type: Spontaneous
  Country: US (occurrence: None)
  Receive Date: 20220711
  Receipt Date: 20220711
  Transmission Date: 20221027
  Serious: No
  Sender: FDA-Public Use
  Company Number: None

PATIENT
  Age: 48 Year
  Sex: Female
  Weight: 76.5 kg

DRUGS (6)
  1. BUPROPION [Suspect]
     Active Substance: BUPROPION
     Indication: Depression
     Dosage: 1 TABLET(S)  DAILY ORAL?
     Route: 048
     Dates: start: 20220601
  2. ODACTRA [Concomitant]
     Active Substance: DERMATOPHAGOIDES FARINAE\DERMATOPHAGOIDES PTERONYSSINUS
  3. ADDERALL [Concomitant]
  4. WELLBUTRIN [Concomitant]
  5. CLARITIN [Concomitant]
     Active Substance: LORATADINE
  6. one a day PROBIOTIC [Concomitant]

REACTIONS (5)
  - Product odour abnormal [None]
  - Agitation [None]
  - Dizziness [None]
  - Headache [None]
  - Therapeutic product effect incomplete [None]

NARRATIVE: CASE EVENT DATE: 20220601
